FAERS Safety Report 6887582-5 (Version None)
Quarter: 2010Q3

REPORT INFORMATION
  Report Type: 
  Country: None (occurrence: None)
  Receive Date: 20100727
  Receipt Date: 20100713
  Transmission Date: 20110219
  Serious: Yes (Other)
  Sender: FDA-Public Use
  Company Number: JP-1182607

PATIENT
  Age: 71 Year
  Sex: Male

DRUGS (1)
  1. FLUORESCITE [Suspect]
     Dosage: 500 ,G = 5 ML
     Route: 040
     Dates: start: 20100625, end: 20100625

REACTIONS (3)
  - BLOOD PRESSURE DECREASED [None]
  - EYE ROLLING [None]
  - LOSS OF CONSCIOUSNESS [None]
